FAERS Safety Report 8559945-3 (Version None)
Quarter: 2012Q3

REPORT INFORMATION
  Report Type: 
  Country: None (occurrence: None)
  Receive Date: 20120802
  Receipt Date: 20120725
  Transmission Date: 20120928
  Serious: Yes (Hospitalization)
  Sender: FDA-Public Use
  Company Number: US-BAYER-2012-033098

PATIENT
  Age: 36 Year
  Sex: Female

DRUGS (8)
  1. LORATADINE [Concomitant]
     Dosage: 10 MG, 1 A DAY
     Route: 048
  2. HYDROMORPHINE HYDROCHLORIDE [Concomitant]
     Dosage: 2 MG, Q4HR
     Route: 048
  3. YASMIN [Suspect]
     Indication: CONTRACEPTION
     Dosage: UNK
     Dates: start: 20081208, end: 20090527
  4. PSEUDOEPHEDRINE HCL [Concomitant]
     Dosage: 30 MG, 1-2 EVERY 4-6 HOURS
     Route: 048
  5. ESOMEPRAZOLE [Concomitant]
     Dosage: 40 MG, 1 DAILY
     Route: 048
  6. FLUTICASONE FUROATE [Concomitant]
     Dosage: EVERY DAY
     Route: 045
  7. TRIAMTEREN HCT [Concomitant]
     Dosage: 75-50MG, 1 EVERY DAY
     Route: 048
  8. YASMIN [Suspect]
     Indication: DYSFUNCTIONAL UTERINE BLEEDING

REACTIONS (11)
  - ANXIETY [None]
  - ATELECTASIS [None]
  - CHEST PAIN [None]
  - RENAL FAILURE ACUTE [None]
  - DYSPNOEA [None]
  - DIZZINESS [None]
  - EMOTIONAL DISTRESS [None]
  - GENERAL PHYSICAL HEALTH DETERIORATION [None]
  - PULMONARY EMBOLISM [None]
  - PAIN [None]
  - INJURY [None]
